APPROVED DRUG PRODUCT: METHOTREXATE SODIUM PRESERVATIVE FREE
Active Ingredient: METHOTREXATE SODIUM
Strength: EQ 1GM BASE/VIAL
Dosage Form/Route: INJECTABLE;INJECTION
Application: N011719 | Product #009
Applicant: HOSPIRA INC
Approved: Apr 7, 1988 | RLD: Yes | RS: No | Type: DISCN